FAERS Safety Report 7328753-3 (Version None)
Quarter: 2011Q1

REPORT INFORMATION
  Report Type: 
  Country: None (occurrence: None)
  Receive Date: 20110303
  Receipt Date: 20110218
  Transmission Date: 20110831
  Serious: Yes (Hospitalization)
  Sender: FDA-Public Use
  Company Number: PHHY2011US14351

PATIENT
  Sex: Male
  Weight: 62 kg

DRUGS (7)
  1. SULFASALAZINE [Concomitant]
  2. LOVASTATIN [Concomitant]
  3. LASIX [Concomitant]
  4. EXJADE [Suspect]
     Indication: MYELODYSPLASTIC SYNDROME
     Dosage: 500 MG, BID
     Route: 048
     Dates: start: 20110113
  5. TRIAMTERENE AND HYDROCHLOROTHIAZID [Concomitant]
  6. PLAQUENIL [Concomitant]
  7. ATENOLOL [Concomitant]

REACTIONS (1)
  - ACUTE LEUKAEMIA [None]
